FAERS Safety Report 5444863-X (Version None)
Quarter: 2007Q3

REPORT INFORMATION
  Report Type: 
  Country: None (occurrence: None)
  Receive Date: 20070906
  Receipt Date: 20070828
  Transmission Date: 20080115
  Serious: Yes (Other)
  Sender: FDA-Public Use
  Company Number: US-AMGEN-KDL239459

PATIENT
  Sex: Female

DRUGS (3)
  1. ENBREL [Suspect]
     Indication: PSORIASIS
     Route: 058
     Dates: start: 20050615, end: 20070115
  2. ALDOMET [Suspect]
  3. OLUX [Concomitant]
     Route: 061
     Dates: start: 20060901

REACTIONS (1)
  - ABORTION SPONTANEOUS [None]
